FAERS Safety Report 16421834 (Version 4)
Quarter: 2021Q3

REPORT INFORMATION
  Report Type: Spontaneous
  Country: US (occurrence: US)
  Receive Date: 20190612
  Receipt Date: 20210723
  Transmission Date: 20211014
  Serious: Yes (Hospitalization, Other)
  Sender: FDA-Public Use
  Company Number: US-ASTRAZENECA-2018SF48275

PATIENT
  Age: 17960 Day
  Sex: Female
  Weight: 115.7 kg

DRUGS (27)
  1. LOSARTAN. [Concomitant]
     Active Substance: LOSARTAN
     Indication: HYPERTENSION
  2. NEXIUM [Suspect]
     Active Substance: ESOMEPRAZOLE MAGNESIUM
     Indication: GASTROOESOPHAGEAL REFLUX DISEASE
     Route: 048
     Dates: start: 201501, end: 201701
  3. TOPROL XL [Concomitant]
     Active Substance: METOPROLOL SUCCINATE
     Route: 065
  4. MELOXICAM. [Concomitant]
     Active Substance: MELOXICAM
     Indication: PAIN
  5. SYMBICORT [Concomitant]
     Active Substance: BUDESONIDE\FORMOTEROL FUMARATE DIHYDRATE
     Route: 065
  6. SOLU?MEDROL [Concomitant]
     Active Substance: METHYLPREDNISOLONE SODIUM SUCCINATE
     Route: 065
  7. ZOFRAN [Concomitant]
     Active Substance: ONDANSETRON HYDROCHLORIDE
     Route: 065
  8. ACETAMINOPHEN. [Concomitant]
     Active Substance: ACETAMINOPHEN
     Indication: HYPERTENSION
  9. NEXIUM [Suspect]
     Active Substance: ESOMEPRAZOLE MAGNESIUM
     Indication: GASTROOESOPHAGEAL REFLUX DISEASE
     Route: 048
     Dates: start: 20150105, end: 20170110
  10. NEXIUM 24HR [Suspect]
     Active Substance: ESOMEPRAZOLE MAGNESIUM
     Indication: GASTROOESOPHAGEAL REFLUX DISEASE
     Route: 048
     Dates: start: 20150105, end: 20170110
  11. PREVACID [Suspect]
     Active Substance: LANSOPRAZOLE
     Indication: GASTROOESOPHAGEAL REFLUX DISEASE
     Route: 065
     Dates: start: 201501, end: 201701
  12. PREVACID [Suspect]
     Active Substance: LANSOPRAZOLE
     Indication: GASTROOESOPHAGEAL REFLUX DISEASE
     Route: 065
     Dates: start: 20140201, end: 20180805
  13. TUMS [Concomitant]
     Active Substance: CALCIUM CARBONATE
     Route: 065
  14. VERAMPIL [Concomitant]
     Route: 065
  15. ALBUTEROL SULFATE. [Concomitant]
     Active Substance: ALBUTEROL SULFATE
     Route: 065
  16. PROMETHAZINE [Concomitant]
     Active Substance: PROMETHAZINE HYDROCHLORIDE
     Route: 065
  17. LISINOPRIL. [Concomitant]
     Active Substance: LISINOPRIL
  18. MONTELUKAST [Concomitant]
     Active Substance: MONTELUKAST SODIUM
     Route: 065
  19. OMEPRAZOLE. [Suspect]
     Active Substance: OMEPRAZOLE
     Indication: GASTROOESOPHAGEAL REFLUX DISEASE
     Dosage: GENERIC
     Route: 065
     Dates: start: 20160818, end: 20180805
  20. FERROUS SULFATE. [Concomitant]
     Active Substance: FERROUS SULFATE
  21. CLONIDINE. [Concomitant]
     Active Substance: CLONIDINE
     Indication: HYPERTENSION
  22. IBUPROFEN. [Concomitant]
     Active Substance: IBUPROFEN
     Indication: HYPERTENSION
  23. RANITIDINE. [Concomitant]
     Active Substance: RANITIDINE
     Route: 065
  24. DULCOLAX NOS [Concomitant]
     Active Substance: BISACODYL OR DOCUSATE SODIUM
     Route: 065
  25. PREDNISONE. [Concomitant]
     Active Substance: PREDNISONE
     Route: 065
  26. NEXIUM 24HR [Suspect]
     Active Substance: ESOMEPRAZOLE MAGNESIUM
     Indication: GASTROOESOPHAGEAL REFLUX DISEASE
     Route: 048
     Dates: start: 201501, end: 201701
  27. TRAMADOL. [Concomitant]
     Active Substance: TRAMADOL
     Indication: PAIN

REACTIONS (11)
  - Musculoskeletal chest pain [Unknown]
  - End stage renal disease [Unknown]
  - Tubulointerstitial nephritis [Unknown]
  - Chronic kidney disease [Not Recovered/Not Resolved]
  - Renal injury [Unknown]
  - Diabetes mellitus [Not Recovered/Not Resolved]
  - Renal failure [Unknown]
  - Nerve injury [Not Recovered/Not Resolved]
  - Dyspepsia [Unknown]
  - Acute kidney injury [Not Recovered/Not Resolved]
  - Abdominal pain [Unknown]

NARRATIVE: CASE EVENT DATE: 20150421
